FAERS Safety Report 14426051 (Version 1)
Quarter: 2018Q1

REPORT INFORMATION
  Report Type: Spontaneous
  Country: US (occurrence: US)
  Receive Date: 20180122
  Receipt Date: 20180122
  Transmission Date: 20180509
  Serious: No
  Sender: FDA-Public Use
  Company Number: None

PATIENT
  Age: 32 Year
  Sex: Female

DRUGS (1)
  1. OTEZLA [Suspect]
     Active Substance: APREMILAST
     Indication: PSORIATIC ARTHROPATHY
     Dosage: 30MG ONE TAB TWICE A DAY ORAL
     Route: 048
     Dates: start: 20170703, end: 20180122

REACTIONS (2)
  - Therapy cessation [None]
  - Pregnancy [None]

NARRATIVE: CASE EVENT DATE: 20180122
